FAERS Safety Report 4504568-6 (Version None)
Quarter: 2004Q4

REPORT INFORMATION
  Report Type: 
  Country: None (occurrence: None)
  Receive Date: 20041118
  Receipt Date: 20041116
  Transmission Date: 20050328
  Serious: Yes (Other)
  Sender: FDA-Public Use
  Company Number: PHBS2004ES15421

PATIENT
  Age: 47 Year
  Sex: Female

DRUGS (1)
  1. GLEEVEC [Suspect]
     Dosage: 100 MG, UNK
     Route: 048

REACTIONS (2)
  - DISEASE PROGRESSION [None]
  - PULMONARY EMBOLISM [None]
